FAERS Safety Report 7183931-1 (Version None)
Quarter: 2010Q4

REPORT INFORMATION
  Report Type: 
  Country: None (occurrence: None)
  Receive Date: 20101222
  Receipt Date: 20101214
  Transmission Date: 20110411
  Serious: Yes (Hospitalization)
  Sender: FDA-Public Use
  Company Number: US-ASTRAZENECA-2010SE42712

PATIENT
  Age: 61 Year
  Sex: Female
  Weight: 71.7 kg

DRUGS (5)
  1. SYMBICORT [Suspect]
     Indication: ASTHMA
     Dosage: 320 MCG BID
     Route: 055
  2. SYMBICORT [Suspect]
     Indication: CHRONIC OBSTRUCTIVE PULMONARY DISEASE
     Dosage: 320 MCG BID
     Route: 055
  3. ALBUTEROL [Concomitant]
     Indication: ASTHMA
     Dosage: EVERY 4 HOURS PRN
  4. GABAPENTIN [Concomitant]
     Indication: HERPES ZOSTER
  5. LISINOPRIL [Concomitant]
     Indication: HYPERTENSION

REACTIONS (5)
  - ASTHMA [None]
  - COLLAPSE OF LUNG [None]
  - DRUG INEFFECTIVE [None]
  - HERPES ZOSTER [None]
  - PNEUMONIA [None]
